FAERS Safety Report 6809443-X (Version None)
Quarter: 2010Q2

REPORT INFORMATION
  Report Type: 
  Country: None (occurrence: None)
  Receive Date: 20100630
  Receipt Date: 20100622
  Transmission Date: 20101027
  Serious: Yes (Other)
  Sender: FDA-Public Use
  Company Number: US-NAPPMUNDI-USA-2010-0044690

PATIENT
  Sex: Male

DRUGS (1)
  1. MS CONTIN [Suspect]
     Indication: DRUG USE FOR UNKNOWN INDICATION
     Dosage: 300 MG, SEE TEXT

REACTIONS (4)
  - EMBOLIC STROKE [None]
  - INCORRECT DOSE ADMINISTERED [None]
  - RESPIRATORY DEPRESSION [None]
  - WRONG TECHNIQUE IN DRUG USAGE PROCESS [None]
